FAERS Safety Report 18895113 (Version 2)
Quarter: 2021Q1

REPORT INFORMATION
  Report Type: Spontaneous
  Country: US (occurrence: US)
  Receive Date: 20210215
  Receipt Date: 20210223
  Transmission Date: 20210420
  Serious: No
  Sender: FDA-Public Use
  Company Number: US-AMGEN-USASP2021022280

PATIENT
  Age: 27 Year
  Sex: Female

DRUGS (1)
  1. AVSOLA [Suspect]
     Active Substance: INFLIXIMAB-AXXQ
     Indication: PSORIATIC ARTHROPATHY
     Dosage: UNK
     Route: 065
     Dates: start: 20210128

REACTIONS (4)
  - Paraesthesia [Unknown]
  - Myalgia [Unknown]
  - Migraine [Unknown]
  - Muscular weakness [Unknown]

NARRATIVE: CASE EVENT DATE: 202102
